FAERS Safety Report 5591864-7 (Version None)
Quarter: 2008Q1

REPORT INFORMATION
  Report Type: 
  Country: None (occurrence: None)
  Receive Date: 20080115
  Receipt Date: 20080110
  Transmission Date: 20080703
  Serious: Yes (Other)
  Sender: FDA-Public Use
  Company Number: B0502696A

PATIENT
  Age: 36 Year
  Sex: Female

DRUGS (1)
  1. TRIZIVIR [Suspect]
     Indication: ANTIVIRAL PROPHYLAXIS
     Dosage: 1TAB TWICE PER DAY
     Route: 048
     Dates: start: 20071120, end: 20071231

REACTIONS (9)
  - ABDOMINAL PAIN UPPER [None]
  - FOETAL DISTRESS SYNDROME [None]
  - FOETAL MOVEMENTS DECREASED [None]
  - INTRA-UTERINE DEATH [None]
  - PREGNANCY INDUCED HYPERTENSION [None]
  - PREMATURE LABOUR [None]
  - STILLBIRTH [None]
  - VAGINAL HAEMORRHAGE [None]
  - VOMITING [None]
